FAERS Safety Report 25721540 (Version 1)
Quarter: 2025Q3

REPORT INFORMATION
  Report Type: Spontaneous
  Country: US (occurrence: None)
  Receive Date: 20250822
  Receipt Date: 20250822
  Transmission Date: 20251021
  Serious: Yes (Hospitalization)
  Sender: FDA-CTU
  Company Number: None

PATIENT
  Sex: Male

DRUGS (3)
  1. VYNDAMAX [Suspect]
     Active Substance: TAFAMIDIS
     Indication: Amyloidosis
     Dosage: TAKE 1 CAPSULE BY MOUTH DAILY
     Route: 048
     Dates: start: 20250731
  2. MULTIVITAMIN TAB ADULTS [Concomitant]
  3. THIAMINE HCL TAB 100MG [Concomitant]

REACTIONS (1)
  - Medical device site haemorrhage [None]
